FAERS Safety Report 15261911 (Version 2)
Quarter: 2019Q3

REPORT INFORMATION
  Report Type: Report from Study
  Country: US (occurrence: US)
  Receive Date: 20180809
  Receipt Date: 20190814
  Transmission Date: 20191004
  Serious: No
  Sender: FDA-Public Use
  Company Number: US-AEGERION PHARMACEUTICAL, INC-AEGR003825

PATIENT
  Age: 42 Year
  Sex: Female
  Weight: 97.51 kg

DRUGS (1)
  1. JUXTAPID [Suspect]
     Active Substance: LOMITAPIDE MESYLATE
     Indication: TYPE IIA HYPERLIPIDAEMIA
     Dosage: 5 MG, QD
     Route: 048
     Dates: start: 20180601

REACTIONS (2)
  - Dysphagia [Unknown]
  - Product dose omission [Unknown]

NARRATIVE: CASE EVENT DATE: 201806
